FAERS Safety Report 6367878-6 (Version None)
Quarter: 2009Q3

REPORT INFORMATION
  Report Type: 
  Country: None (occurrence: None)
  Receive Date: 20090922
  Receipt Date: 20070702
  Transmission Date: 20100115
  Serious: Yes (Death, Hospitalization, Disabling)
  Sender: FDA-Public Use
  Company Number: US-ASTRAZENECA-2006UW21621

PATIENT
  Age: 21674 Day
  Sex: Male
  Weight: 66.2 kg

DRUGS (22)
  1. SEROQUEL [Suspect]
     Indication: DEPRESSION
     Route: 048
     Dates: start: 20040601
  2. STELAZINE [Concomitant]
  3. THORAZINE [Concomitant]
  4. ZYPREXA [Concomitant]
  5. IRON SULFATETHIAMIN COMPOUND TAB [Concomitant]
     Route: 048
     Dates: start: 20030708
  6. DILANTIN [Concomitant]
     Indication: CONVULSION
     Dosage: 100 MG 2 BID
     Dates: start: 19970717
  7. GEMFIBROZIL [Concomitant]
     Route: 048
     Dates: start: 20030708
  8. GLUCOPHAGE [Concomitant]
     Route: 048
     Dates: start: 20030708
  9. TERAZOSIN HCL [Concomitant]
     Route: 048
     Dates: start: 20030708
  10. GLIPIZIDE [Concomitant]
     Dates: start: 20030708
  11. ADALAT CC [Concomitant]
     Indication: HYPERTENSION
     Dosage: 30 MG TO 60 MG
     Route: 048
     Dates: start: 20030708
  12. COREG [Concomitant]
     Route: 048
     Dates: start: 20050424
  13. HYDRALAZINE HCL [Concomitant]
     Route: 048
     Dates: start: 20050424
  14. ASPIRIN [Concomitant]
     Route: 048
  15. DIOVAN [Concomitant]
     Dates: start: 20050329
  16. FOSAMAX [Concomitant]
     Dates: start: 19970717
  17. GLYBURIDE [Concomitant]
     Dates: start: 19970717
  18. ACCUPRIL [Concomitant]
     Dates: start: 19970717
  19. NAPROSYN [Concomitant]
     Indication: BACK PAIN
     Dates: start: 19970717
  20. NAPROSYN [Concomitant]
     Indication: ARTHRALGIA
     Dates: start: 19970717
  21. CAPTOPRIL [Concomitant]
     Indication: HYPERTENSION
     Dosage: 100 MG TO 150 MG
     Dates: start: 20020101
  22. PAXIL [Concomitant]
     Indication: DEPRESSION
     Dates: start: 20020815

REACTIONS (4)
  - HEPATIC NEOPLASM MALIGNANT [None]
  - HYPERTENSION [None]
  - INSULIN-REQUIRING TYPE 2 DIABETES MELLITUS [None]
  - TYPE 1 DIABETES MELLITUS [None]
